FAERS Safety Report 5129616-4 (Version None)
Quarter: 2006Q4

REPORT INFORMATION
  Report Type: 
  Country: None (occurrence: None)
  Receive Date: 20061012
  Receipt Date: 20061002
  Transmission Date: 20070319
  Serious: Yes (Other)
  Sender: FDA-Public Use
  Company Number: 2006119025

PATIENT
  Sex: Female

DRUGS (2)
  1. NEURONTIN [Suspect]
     Indication: HYPOAESTHESIA
     Dosage: (300 MG)
  2. NEURONTIN [Suspect]
     Indication: PARAESTHESIA
     Dosage: (300 MG)

REACTIONS (3)
  - FEELING DRUNK [None]
  - GAIT DISTURBANCE [None]
  - IMPAIRED DRIVING ABILITY [None]
